FAERS Safety Report 4527491-X (Version None)
Quarter: 2004Q4

REPORT INFORMATION
  Report Type: 
  Country: None (occurrence: None)
  Receive Date: 20041215
  Receipt Date: 20030130
  Transmission Date: 20050328
  Serious: Yes (Hospitalization, Other)
  Sender: FDA-Public Use
  Company Number: PHEH2003US01124

PATIENT
  Age: 70 Year
  Sex: Female

DRUGS (16)
  1. AREDIA [Suspect]
     Indication: BREAST CANCER
     Dosage: Q28 DAYS
     Dates: start: 20010308, end: 20020507
  2. AMLODIPINE BESYLATE [Concomitant]
     Indication: HYPERTENSION
     Dosage: 5 MG, QD
  3. PAXIL [Concomitant]
     Indication: ANXIETY
     Dosage: 20 MG, QD
  4. ACCUPRIL [Concomitant]
     Indication: HYPERTENSION
     Dosage: 20 MG, QD
  5. CLARITIN [Concomitant]
  6. CALCIUM [Concomitant]
  7. XALATAN [Concomitant]
     Indication: GLAUCOMA
  8. ALPHAGAN [Concomitant]
     Indication: GLAUCOMA
  9. ALLEGRA [Concomitant]
     Indication: CHRONIC SINUSITIS
     Dosage: UNK, PRN
  10. TAMOXIFEN CITRATE [Concomitant]
     Indication: BREAST CANCER
     Dosage: 20 MG, QD
     Dates: start: 20000302, end: 20010222
  11. ANASTROZOLE [Concomitant]
     Indication: BREAST CANCER
     Dosage: 1 UNK, QD
     Dates: start: 20010222, end: 20030211
  12. ALBUTEROL [Concomitant]
     Indication: ASTHMA
     Dosage: 2 PUFFS, PRN
  13. ADRIAMYCIN PFS [Concomitant]
  14. CYTOXAN [Concomitant]
  15. TAXOL [Concomitant]
  16. CORTICOSTEROIDS [Concomitant]

REACTIONS (13)
  - BONE DEBRIDEMENT [None]
  - BONE NEOPLASM [None]
  - CELLULITIS [None]
  - DYSPLASIA [None]
  - HYPERBARIC OXYGEN THERAPY [None]
  - IMPAIRED HEALING [None]
  - MANDIBULECTOMY [None]
  - MASS [None]
  - ORAL INFECTION [None]
  - OSTEOMYELITIS [None]
  - OSTEONECROSIS [None]
  - SWELLING FACE [None]
  - TOOTH EXTRACTION [None]
